FAERS Safety Report 17236304 (Version 1)
Quarter: 2020Q1

REPORT INFORMATION
  Report Type: Spontaneous
  Country: US (occurrence: US)
  Receive Date: 20200103
  Receipt Date: 20200103
  Transmission Date: 20200409
  Serious: No
  Sender: FDA-Public Use
  Company Number: None

PATIENT
  Age: 57 Year
  Sex: Female
  Weight: 47 kg

DRUGS (4)
  1. DEXAMETHASONE 10 MG IVPB [Concomitant]
     Dates: start: 20191230, end: 20191230
  2. GRANISETRON 1 MG IVPB [Concomitant]
     Dates: start: 20191230, end: 20191230
  3. OXALIPLATIN. [Suspect]
     Active Substance: OXALIPLATIN
     Indication: RECTAL CANCER
     Dosage: ?          OTHER FREQUENCY:ONCE;?
     Route: 042
     Dates: start: 20191230, end: 20191230
  4. EMEND 150 MG IVPB [Concomitant]
     Dates: start: 20191230, end: 20191230

REACTIONS (2)
  - Dyspnoea [None]
  - Dysphagia [None]

NARRATIVE: CASE EVENT DATE: 20191230
